FAERS Safety Report 7071588-X (Version None)
Quarter: 2010Q4

REPORT INFORMATION
  Report Type: 
  Country: None (occurrence: None)
  Receive Date: 20101029
  Receipt Date: 20101020
  Transmission Date: 20110411
  Serious: Yes (Other)
  Sender: FDA-Public Use
  Company Number: AT-SANOFI-AVENTIS-2010SA064273

PATIENT
  Sex: Female

DRUGS (1)
  1. MULTAQ [Suspect]
     Indication: ATRIAL FIBRILLATION
     Route: 048
     Dates: start: 20100101, end: 20100101

REACTIONS (2)
  - CREATININE RENAL CLEARANCE INCREASED [None]
  - RENAL FAILURE [None]
